FAERS Safety Report 12658492 (Version 1)
Quarter: 2016Q3

REPORT INFORMATION
  Report Type: Spontaneous
  Country: US (occurrence: US)
  Receive Date: 20160817
  Receipt Date: 20160817
  Transmission Date: 20161109
  Serious: Yes (Other)
  Sender: FDA-Public Use
  Company Number: US-AUROBINDO-AUR-APL-2016-10439

PATIENT
  Age: 67 Year
  Sex: Male

DRUGS (12)
  1. RITUXIMAB [Concomitant]
     Active Substance: RITUXIMAB
     Indication: EPSTEIN-BARR VIRAEMIA
     Dosage: WEEKLY
     Route: 065
  2. VALGANCICLOVIR. [Concomitant]
     Active Substance: VALGANCICLOVIR
     Dosage: 450 MG, TWO TIMES A DAY MAINTENANCE THERAPY
     Route: 065
  3. ANTITHYMOCYTE IMMUNOGLOBULIN [Concomitant]
     Active Substance: THYMOCYTE IMMUNE GLOBULIN NOS
     Indication: PROPHYLAXIS AGAINST GRAFT VERSUS HOST DISEASE
     Route: 065
  4. FLUDARABINE [Concomitant]
     Active Substance: FLUDARABINE PHOSPHATE
     Indication: PRODUCT USED FOR UNKNOWN INDICATION
     Route: 065
  5. FOSCARNET [Suspect]
     Active Substance: FOSCARNET
     Indication: CYTOMEGALOVIRUS VIRAEMIA
     Dosage: UNK
     Route: 065
  6. METHOTREXATE. [Concomitant]
     Active Substance: METHOTREXATE
     Indication: PROPHYLAXIS AGAINST GRAFT VERSUS HOST DISEASE
     Route: 065
  7. IMMUNOGLOBULIN G HUMAN [Concomitant]
     Active Substance: HUMAN IMMUNOGLOBULIN G
     Indication: EPSTEIN-BARR VIRAEMIA
     Route: 042
  8. VALACICLOVIR 1000MG [Suspect]
     Active Substance: VALACYCLOVIR HYDROCHLORIDE
     Indication: MOUTH ULCERATION
     Dosage: 1 G, TWO TIMES A DAY
     Route: 048
  9. FOSCARNET [Suspect]
     Active Substance: FOSCARNET
     Indication: MOUTH ULCERATION
     Route: 065
  10. CICLOSPORIN [Concomitant]
     Active Substance: CYCLOSPORINE
     Indication: PROPHYLAXIS AGAINST GRAFT VERSUS HOST DISEASE
     Route: 065
  11. VALGANCICLOVIR. [Concomitant]
     Active Substance: VALGANCICLOVIR
     Indication: CYTOMEGALOVIRUS VIRAEMIA
     Dosage: 900 MG, TWO TIMES A DAY
     Route: 065
  12. ACICLOVIR [Suspect]
     Active Substance: ACYCLOVIR
     Indication: ANTIVIRAL PROPHYLAXIS
     Route: 065

REACTIONS (1)
  - Drug resistance [Unknown]
